FAERS Safety Report 19455693 (Version 1)
Quarter: 2021Q2

REPORT INFORMATION
  Report Type: Spontaneous
  Country: US (occurrence: US)
  Receive Date: 20210624
  Receipt Date: 20210624
  Transmission Date: 20210717
  Serious: Yes (Life-Threatening, Hospitalization, Other)
  Sender: FDA-Public Use
  Company Number: US-SCIEGENPHARMA-2021SCILIT00512

PATIENT
  Age: 18 Year
  Sex: Female

DRUGS (12)
  1. METHYLENE BLUE. [Interacting]
     Active Substance: METHYLENE BLUE
     Indication: SUPPORTIVE CARE
     Route: 040
  2. NITROUS OXIDE. [Interacting]
     Active Substance: NITROUS OXIDE
     Indication: SUPPORTIVE CARE
     Route: 065
  3. VASOPRESSIN. [Interacting]
     Active Substance: VASOPRESSIN
     Indication: SUPPORTIVE CARE
     Dosage: 2.4 UNITS/MIN
     Route: 065
  4. AMLODIPINE [Suspect]
     Active Substance: AMLODIPINE BESYLATE
     Indication: PRODUCT USED FOR UNKNOWN INDICATION
     Route: 048
  5. INSULIN [Suspect]
     Active Substance: INSULIN NOS
     Dosage: 9 UNITS/KG/HOUR
     Route: 065
  6. CALCIUM GLUCONATE. [Interacting]
     Active Substance: CALCIUM GLUCONATE
     Indication: SUPPORTIVE CARE
     Route: 065
  7. PHENYLEPHRINE [Interacting]
     Active Substance: PHENYLEPHRINE HYDROCHLORIDE
     Indication: SUPPORTIVE CARE
     Route: 065
  8. PROPOFOL. [Interacting]
     Active Substance: PROPOFOL
     Indication: SUPPORTIVE CARE
     Route: 065
  9. CARVEDILOL. [Suspect]
     Active Substance: CARVEDILOL
     Indication: PRODUCT USED FOR UNKNOWN INDICATION
     Dosage: 30 TABLETS
     Route: 048
  10. NOREPINEPHRINE. [Interacting]
     Active Substance: NOREPINEPHRINE
     Indication: SUPPORTIVE CARE
     Dosage: 0.45 MCG/KG/ MIN
     Route: 065
  11. HYDROCHLOROTHIAZIDE. [Suspect]
     Active Substance: HYDROCHLOROTHIAZIDE
     Indication: PRODUCT USED FOR UNKNOWN INDICATION
     Dosage: 30 TABLETS
     Route: 048
  12. FUROSEMIDE. [Suspect]
     Active Substance: FUROSEMIDE
     Indication: PRODUCT USED FOR UNKNOWN INDICATION
     Route: 048

REACTIONS (4)
  - Distributive shock [Recovered/Resolved]
  - Cardiogenic shock [Recovered/Resolved]
  - Toxicity to various agents [Recovered/Resolved]
  - Overdose [Recovered/Resolved]
